FAERS Safety Report 5052291-4 (Version None)
Quarter: 2006Q3

REPORT INFORMATION
  Report Type: 
  Country: None (occurrence: None)
  Receive Date: 20060717
  Receipt Date: 20060707
  Transmission Date: 20061208
  Serious: Yes (Hospitalization)
  Sender: FDA-Public Use
  Company Number: US-KINGPHARMUSA00001-K200600883

PATIENT
  Age: 40 Year
  Sex: Male

DRUGS (3)
  1. SEPTRA [Suspect]
     Dates: start: 20060601
  2. EFAVIRENZ [Suspect]
     Dates: start: 20060601
  3. KIVEXA [Suspect]
     Indication: HIV INFECTION
     Dates: start: 20060601

REACTIONS (5)
  - BODY TEMPERATURE INCREASED [None]
  - HYPOTENSION [None]
  - MALAISE [None]
  - OXYGEN SATURATION DECREASED [None]
  - PYREXIA [None]
